FAERS Safety Report 6460399-1 (Version None)
Quarter: 2009Q4

REPORT INFORMATION
  Report Type: 
  Country: None (occurrence: None)
  Receive Date: 20091123
  Receipt Date: 20091116
  Transmission Date: 20100525
  Serious: Yes (Death, Hospitalization, Other)
  Sender: FDA-Public Use
  Company Number: WAES 0809USA01998

PATIENT
  Age: 42 Year
  Sex: Female
  Weight: 53.978 kg

DRUGS (31)
  1. ISENTRESS [Suspect]
     Indication: HIV INFECTION
     Dosage: 400 MG/Q12H/PO ; 400 MG/Q12H/PO
     Route: 048
     Dates: start: 20080805, end: 20080910
  2. ISENTRESS [Suspect]
     Indication: HIV INFECTION
     Dosage: 400 MG/Q12H/PO ; 400 MG/Q12H/PO
     Route: 048
     Dates: start: 20081106, end: 20081224
  3. PREZISTA [Suspect]
     Indication: HIV INFECTION
     Dosage: 600 MG/Q12H/PO ; 600 MG/Q12H/PO
     Route: 048
     Dates: start: 20080805, end: 20080828
  4. PREZISTA [Suspect]
     Indication: HIV INFECTION
     Dosage: 600 MG/Q12H/PO ; 600 MG/Q12H/PO
     Route: 048
     Dates: start: 20081106, end: 20081224
  5. INTELENCE [Suspect]
     Indication: HIV INFECTION
     Dosage: 200 MG/Q12H/PO ; 200 MG/Q12H/PO
     Route: 048
     Dates: start: 20080805, end: 20080910
  6. INTELENCE [Suspect]
     Indication: HIV INFECTION
     Dosage: 200 MG/Q12H/PO ; 200 MG/Q12H/PO
     Route: 048
     Dates: start: 20081106, end: 20081224
  7. BACTRIM DS [Suspect]
     Dosage: DAILY/PO
     Route: 048
     Dates: start: 20080606
  8. RETROVIR [Suspect]
     Indication: HIV INFECTION
     Dosage: 300 MG/Q12H/PO
     Route: 048
     Dates: start: 20080805, end: 20080910
  9. RETROVIR [Suspect]
     Indication: HIV INFECTION
     Dosage: 300 MG/Q12H/PO
     Route: 048
     Dates: start: 20081106, end: 20081209
  10. TRUVADA [Suspect]
     Indication: HIV INFECTION
     Dosage: 200/300 MG/DAILY/PO ; 200/300 MG/DAILY/PO
     Route: 048
     Dates: start: 20080805, end: 20080910
  11. TRUVADA [Suspect]
     Indication: HIV INFECTION
     Dosage: 200/300 MG/DAILY/PO ; 200/300 MG/DAILY/PO
     Route: 048
     Dates: start: 20081106, end: 20081224
  12. NORVIR [Suspect]
     Indication: HIV INFECTION
     Dosage: 100 MG/Q12H/PO ; 100 MG/BID/PO
     Route: 048
     Dates: start: 20080805, end: 20080828
  13. NORVIR [Suspect]
     Indication: HIV INFECTION
     Dosage: 100 MG/Q12H/PO ; 100 MG/BID/PO
     Route: 048
     Dates: start: 20081106, end: 20081224
  14. AMPHOTERICIN B [Suspect]
  15. COLACE [Concomitant]
  16. COMPAZINE [Concomitant]
  17. DELSYM [Concomitant]
  18. DESYREL [Concomitant]
  19. DIFLUCAN [Concomitant]
  20. LOMOTIL [Concomitant]
  21. MARINOL [Concomitant]
  22. PEPCID [Concomitant]
  23. ZOFRAN [Concomitant]
  24. AZITHROMYCIN [Concomitant]
  25. DEXAMETHASONE TAB [Concomitant]
  26. HYROXYZINE HYDROCHLORIDE [Concomitant]
  27. IBUPROFEN [Concomitant]
  28. PANTOPRAZOLE [Concomitant]
  29. PENTAMIDINE ISETHIONATE [Concomitant]
  30. POTASSIUM CHLORIDE [Concomitant]
  31. PREDNISONE [Concomitant]

REACTIONS (48)
  - ACTIVITIES OF DAILY LIVING IMPAIRED [None]
  - AGITATION [None]
  - ALVEOLITIS ALLERGIC [None]
  - ANAEMIA [None]
  - ANAL SKIN TAGS [None]
  - AUTOIMMUNE DISORDER [None]
  - BACK PAIN [None]
  - CACHEXIA [None]
  - CHOLELITHIASIS [None]
  - CONDITION AGGRAVATED [None]
  - CONFUSIONAL STATE [None]
  - DECREASED APPETITE [None]
  - DEHYDRATION [None]
  - DEPRESSION [None]
  - DIARRHOEA [None]
  - DRUG HYPERSENSITIVITY [None]
  - ENTEROCOCCAL INFECTION [None]
  - FAILURE TO THRIVE [None]
  - FUNGAL OESOPHAGITIS [None]
  - GASTRIC DISORDER [None]
  - GASTRIC ULCER [None]
  - GASTROINTESTINAL MUCOSAL DISORDER [None]
  - GASTROOESOPHAGEAL REFLUX DISEASE [None]
  - HAEMORRHOIDS [None]
  - HEPATOTOXICITY [None]
  - HIATUS HERNIA [None]
  - HOT FLUSH [None]
  - HYPERNATRAEMIA [None]
  - HYPOAESTHESIA [None]
  - HYPOPHAGIA [None]
  - IMMUNE RECONSTITUTION SYNDROME [None]
  - INTERNATIONAL NORMALISED RATIO INCREASED [None]
  - LICHENOID KERATOSIS [None]
  - LOBAR PNEUMONIA [None]
  - NEUTROPENIA [None]
  - ODYNOPHAGIA [None]
  - OESOPHAGEAL CANDIDIASIS [None]
  - OROPHARYNGEAL PAIN [None]
  - PANCREATITIS [None]
  - PNEUMOCYSTIS JIROVECI PNEUMONIA [None]
  - REFUSAL OF TREATMENT BY PATIENT [None]
  - RENAL CYST [None]
  - RENAL FAILURE ACUTE [None]
  - STREPTOCOCCAL INFECTION [None]
  - THROMBOCYTOPENIA [None]
  - TRICUSPID VALVE INCOMPETENCE [None]
  - TUBULOINTERSTITIAL NEPHRITIS [None]
  - URINARY TRACT INFECTION [None]
